FAERS Safety Report 4730376-7 (Version None)
Quarter: 2005Q3

REPORT INFORMATION
  Report Type: 
  Country: None (occurrence: None)
  Receive Date: 20050801
  Receipt Date: 20050706
  Transmission Date: 20060218
  Serious: Yes (Life-Threatening, Hospitalization)
  Sender: FDA-Public Use
  Company Number: 2005AC01010

PATIENT
  Age: 26163 Day
  Sex: Female

DRUGS (4)
  1. ARIMIDEX [Suspect]
     Indication: BREAST CANCER
     Route: 048
     Dates: start: 20050610, end: 20050615
  2. LISINOPRILUM [Interacting]
     Indication: HYPERTENSION
     Route: 048
     Dates: start: 19960101, end: 20050615
  3. HYDROCHLOROTHIAZIDUM [Concomitant]
     Route: 048
  4. ASCAL SACHET [Concomitant]
     Dosage: SACHET
     Route: 048

REACTIONS (2)
  - ANGIONEUROTIC OEDEMA [None]
  - DRUG INTERACTION [None]
